FAERS Safety Report 6595733-5 (Version None)
Quarter: 2010Q1

REPORT INFORMATION
  Report Type: 
  Country: None (occurrence: None)
  Receive Date: 20100223
  Receipt Date: 20100215
  Transmission Date: 20100710
  Serious: Yes (Other)
  Sender: FDA-Public Use
  Company Number: GB-JNJFOC-20100206963

PATIENT
  Sex: Male
  Weight: 69 kg

DRUGS (4)
  1. REMICADE [Suspect]
     Indication: RHEUMATOID ARTHRITIS
     Route: 042
     Dates: start: 20031209
  2. METHOTREXATE [Concomitant]
  3. FOLIC ACID [Concomitant]
  4. NAPROXEN [Concomitant]

REACTIONS (3)
  - BRONCHIECTASIS [None]
  - DIAPHRAGMATIC HERNIA [None]
  - EMPHYSEMA [None]
